FAERS Safety Report 10223363 (Version 2)
Quarter: 2014Q2

REPORT INFORMATION
  Report Type: Spontaneous
  Country: US (occurrence: None)
  Receive Date: 20140605
  Receipt Date: 20140623
  Transmission Date: 20141212
  Serious: Yes (Hospitalization)
  Sender: FDA-Public Use
  Company Number: US-015846

PATIENT
  Age: 69 Year
  Sex: Male

DRUGS (1)
  1. FIRMAGON /01764801/ (240 MG, 80 MG) (NOT SPECIFIED) [Suspect]
     Indication: PRODUCT USED FOR UNKNOWN INDICATION
     Route: 058
     Dates: start: 20140307, end: 20140307

REACTIONS (12)
  - Hot flush [None]
  - Skin reaction [None]
  - Injection site swelling [None]
  - Injection site pain [None]
  - Injection site mass [None]
  - Stress [None]
  - Dizziness [None]
  - Fall [None]
  - Accident [None]
  - Head injury [None]
  - Laceration [None]
  - Syncope [None]
